FAERS Safety Report 18942262 (Version 3)
Quarter: 2021Q3

REPORT INFORMATION
  Report Type: Report from Study
  Country: US (occurrence: US)
  Receive Date: 20210225
  Receipt Date: 20210727
  Transmission Date: 20211014
  Serious: Yes (Other)
  Sender: FDA-Public Use
  Company Number: US-SHIRE-US201942005

PATIENT
  Age: 59 Year
  Sex: Female

DRUGS (1)
  1. HUMAN IMMUNOGLOBULIN; HYALURONIDASE [Suspect]
     Active Substance: HUMAN IMMUNOGLOBULIN G\HYALURONIDASE RECOMBINANT HUMAN
     Indication: IMMUNODEFICIENCY COMMON VARIABLE
     Dosage: 40 GRAM, Q4WEEKS
     Route: 065

REACTIONS (14)
  - Joint dislocation [Unknown]
  - Sinusitis [Unknown]
  - Product dose omission issue [Unknown]
  - Vertigo [Unknown]
  - Insurance issue [Recovering/Resolving]
  - Swelling [Unknown]
  - Cognitive disorder [Unknown]
  - Pain in extremity [Unknown]
  - Neuropathy peripheral [Unknown]
  - Benign neoplasm [Unknown]
  - Bronchitis [Unknown]
  - Fatigue [Unknown]
  - Fall [Unknown]
  - Poor venous access [Unknown]

NARRATIVE: CASE EVENT DATE: 202010
